FAERS Safety Report 4628271-7 (Version None)
Quarter: 2005Q2

REPORT INFORMATION
  Report Type: 
  Country: None (occurrence: None)
  Receive Date: 20050401
  Receipt Date: 20050324
  Transmission Date: 20051028
  Serious: Yes (Hospitalization)
  Sender: FDA-Public Use
  Company Number: 212560

PATIENT
  Age: 69 Year
  Sex: Male

DRUGS (9)
  1. XOLAIR [Suspect]
     Indication: ASTHMA
     Dosage: 150 MG, 1/MONTH
     Dates: start: 20041012, end: 20041109
  2. ADVAIR (SALMETEROL XINAFOATE, FLUTICASONE PROPIONATE) [Concomitant]
  3. SINGULAIR [Concomitant]
  4. ACIPHEX [Concomitant]
  5. REGLAN [Concomitant]
  6. AVALIDE [Concomitant]
  7. CARDIZEM CD [Concomitant]
  8. ASPIRIN [Concomitant]
  9. CARDURA [Concomitant]

REACTIONS (3)
  - ASTHMA [None]
  - CHRONIC OBSTRUCTIVE AIRWAYS DISEASE EXACERBATED [None]
  - CONDITION AGGRAVATED [None]
